FAERS Safety Report 20604397 (Version 2)
Quarter: 2022Q2

REPORT INFORMATION
  Report Type: Spontaneous
  Country: US (occurrence: US)
  Receive Date: 20220316
  Receipt Date: 20220414
  Transmission Date: 20220720
  Serious: Yes (Hospitalization, Other)
  Sender: FDA-Public Use
  Company Number: US-GILEAD-2022-0573998

PATIENT
  Age: 71 Year
  Sex: Female

DRUGS (19)
  1. YESCARTA [Suspect]
     Active Substance: AXICABTAGENE CILOLEUCEL
     Indication: Diffuse large B-cell lymphoma
     Dosage: UNK
     Route: 065
     Dates: start: 20220222, end: 20220222
  2. YESCARTA [Suspect]
     Active Substance: AXICABTAGENE CILOLEUCEL
     Indication: Follicular lymphoma
  3. PHENAZOPYRIDINE [Concomitant]
     Active Substance: PHENAZOPYRIDINE
  4. SULFAMETHOXAZOLE [Concomitant]
     Active Substance: SULFAMETHOXAZOLE
  5. MELATONIN [Concomitant]
     Active Substance: MELATONIN
  6. TRAZODONE [Concomitant]
     Active Substance: TRAZODONE HYDROCHLORIDE
  7. CHOLECALCIFEROL [Concomitant]
     Active Substance: CHOLECALCIFEROL
  8. MAGNESIUM GLUCONATE [Concomitant]
     Active Substance: MAGNESIUM GLUCONATE
  9. CALCIUM CARBONATE\CHOLECALCIFEROL [Concomitant]
     Active Substance: CALCIUM CARBONATE\CHOLECALCIFEROL
  10. ESTRADIOL [Concomitant]
     Active Substance: ESTRADIOL
  11. ALPHA LIPOIC ACID [Concomitant]
     Active Substance: .ALPHA.-LIPOIC ACID
  12. VALACYCLOVIR HYDROCHLORIDE [Concomitant]
     Active Substance: VALACYCLOVIR HYDROCHLORIDE
  13. ATORVASTATIN [Concomitant]
     Active Substance: ATORVASTATIN
  14. VITAMINS NOS [Concomitant]
     Active Substance: VITAMINS
  15. POLYETHYLENE GLYCOL 3350 [Concomitant]
     Active Substance: POLYETHYLENE GLYCOL 3350
  16. CYCLOSPORINE [Concomitant]
     Active Substance: CYCLOSPORINE
  17. ZYRTEC [Concomitant]
     Active Substance: CETIRIZINE HYDROCHLORIDE
  18. FLUTICASONE [Concomitant]
     Active Substance: FLUTICASONE
  19. LEVOTHYROXINE [Concomitant]
     Active Substance: LEVOTHYROXINE

REACTIONS (5)
  - Neurotoxicity [Recovered/Resolved]
  - Embolic stroke [Not Recovered/Not Resolved]
  - Cerebral infarction [Recovering/Resolving]
  - Cerebral infarction [Recovering/Resolving]
  - Cytokine release syndrome [Unknown]

NARRATIVE: CASE EVENT DATE: 20220301
